FAERS Safety Report 9989780 (Version 1)
Quarter: 2014Q1

REPORT INFORMATION
  Report Type: Report from Study
  Country: US (occurrence: US)
  Receive Date: 20140310
  Receipt Date: 20140310
  Transmission Date: 20141002
  Serious: No
  Sender: FDA-Public Use
  Company Number: US-ABBVIE-13P-163-1129003-00

PATIENT
  Age: 41 Year
  Sex: Female
  Weight: 97.16 kg

DRUGS (8)
  1. HUMIRA [Suspect]
     Indication: PSORIASIS
     Dosage: PSORIASIS STARTER KIT
     Route: 058
     Dates: start: 201301, end: 201301
  2. HUMIRA [Suspect]
     Dates: start: 201301, end: 201301
  3. XANAX [Concomitant]
     Indication: PANIC ATTACK
  4. REMRON [Concomitant]
     Indication: SLEEP DISORDER
     Dates: end: 201307
  5. HERBALS SUPPLEMENTS [Concomitant]
     Indication: SLEEP DISORDER
     Dates: start: 201307
  6. SYNTHROID [Concomitant]
     Indication: HYPOTHYROIDISM
  7. PRAVASTATIN [Concomitant]
     Indication: BLOOD CHOLESTEROL INCREASED
  8. PHENERGAN [Concomitant]
     Indication: NAUSEA
     Dosage: PRN

REACTIONS (3)
  - Mobility decreased [Recovered/Resolved]
  - Herpes zoster [Recovered/Resolved]
  - Local swelling [Recovered/Resolved]
